FAERS Safety Report 17341328 (Version 1)
Quarter: 2020Q1

REPORT INFORMATION
  Report Type: Spontaneous
  Country: US (occurrence: US)
  Receive Date: 20200129
  Receipt Date: 20200129
  Transmission Date: 20200409
  Serious: No
  Sender: FDA-Public Use
  Company Number: US-ALLERGAN-1914698US

PATIENT
  Age: 69 Year
  Sex: Female
  Weight: 79.4 kg

DRUGS (17)
  1. CARBIDOPA/LEVODOPA [Concomitant]
     Active Substance: CARBIDOPA\LEVODOPA
  2. PAROXETINE. [Concomitant]
     Active Substance: PAROXETINE
  3. MELATONIN [Concomitant]
     Active Substance: MELATONIN
  4. AMANTADINE. [Suspect]
     Active Substance: AMANTADINE HYDROCHLORIDE
     Indication: DYSKINESIA
     Dosage: 137 MG, QHS
     Route: 048
     Dates: start: 20190125, end: 20190130
  5. POTASSIUM CHLORIDE. [Concomitant]
     Active Substance: POTASSIUM CHLORIDE
  6. VITAMIN C [Concomitant]
     Active Substance: ASCORBIC ACID
  7. FISH OIL [Concomitant]
     Active Substance: FISH OIL
  8. COLACE [Concomitant]
     Active Substance: DOCUSATE SODIUM
     Dosage: 100 MG
  9. HYDROCHLOROTHIAZIDE. [Concomitant]
     Active Substance: HYDROCHLOROTHIAZIDE
  10. CALCIUM +D3 [Concomitant]
     Active Substance: CALCIUM\CHOLECALCIFEROL
  11. BOTOX [Suspect]
     Active Substance: ONABOTULINUMTOXINA
     Indication: TORTICOLLIS
     Dosage: UNK, SINGLE (3 DOSES)
     Route: 030
     Dates: start: 20190125, end: 20190125
  12. IBUPROFEN. [Concomitant]
     Active Substance: IBUPROFEN
  13. SENNA GLYCOSIDES [Concomitant]
     Active Substance: HERBALS\SENNOSIDES
     Dosage: 8.6 MG
  14. AMLODIPINE [Concomitant]
     Active Substance: AMLODIPINE BESYLATE
  15. METHYLPREDNISOLONE. [Concomitant]
     Active Substance: METHYLPREDNISOLONE
  16. MYRBETRIQ [Concomitant]
     Active Substance: MIRABEGRON
  17. VITAMIN B-6 [Concomitant]
     Active Substance: PYRIDOXINE

REACTIONS (6)
  - Confusional state [Recovering/Resolving]
  - Asthenia [Recovering/Resolving]
  - Choking [Recovered/Resolved]
  - Speech disorder [Unknown]
  - Movement disorder [Recovering/Resolving]
  - Cough [Recovered/Resolved]

NARRATIVE: CASE EVENT DATE: 20190125
